FAERS Safety Report 19091668 (Version 1)
Quarter: 2021Q2

REPORT INFORMATION
  Report Type: Spontaneous
  Country: FR (occurrence: FR)
  Receive Date: 20210405
  Receipt Date: 20210405
  Transmission Date: 20210717
  Serious: Yes (Hospitalization)
  Sender: FDA-Public Use
  Company Number: FR-ROCHE-2796169

PATIENT
  Age: 60 Year
  Sex: Male
  Weight: 63 kg

DRUGS (2)
  1. AVASTIN [Suspect]
     Active Substance: BEVACIZUMAB
     Indication: HEPATOCELLULAR CARCINOMA
     Dosage: 1200 MG/CURE
     Route: 041
     Dates: start: 20201124, end: 20210105
  2. TECENTRIQ [Suspect]
     Active Substance: ATEZOLIZUMAB
     Indication: HEPATOCELLULAR CARCINOMA
     Dosage: 1050 MG/CURE
     Route: 041
     Dates: start: 20201124, end: 20210105

REACTIONS (5)
  - Intestinal ischaemia [Recovering/Resolving]
  - Acute kidney injury [Recovering/Resolving]
  - Arteriovenous fistula [Recovered/Resolved]
  - Oesophageal varices haemorrhage [Recovering/Resolving]
  - Portal hypertension [Recovered/Resolved]

NARRATIVE: CASE EVENT DATE: 20210108
